FAERS Safety Report 8318161-0 (Version None)
Quarter: 2012Q2

REPORT INFORMATION
  Report Type: 
  Country: None (occurrence: None)
  Receive Date: 20120427
  Receipt Date: 20120419
  Transmission Date: 20120825
  Serious: Yes (Hospitalization)
  Sender: FDA-Public Use
  Company Number: US-ABBOTT-12P-163-0927830-00

PATIENT
  Sex: Female
  Weight: 69.008 kg

DRUGS (6)
  1. FOLIC ACID [Concomitant]
     Indication: VITAMIN SUPPLEMENTATION
  2. HUMIRA [Suspect]
     Indication: PSORIATIC ARTHROPATHY
  3. METHOTREXATE [Concomitant]
     Indication: PSORIATIC ARTHROPATHY
  4. XANAX [Concomitant]
     Indication: ANXIETY
  5. SOMA [Concomitant]
     Indication: ARTHRALGIA
  6. HUMIRA [Suspect]
     Indication: PSORIASIS

REACTIONS (2)
  - MIGRAINE [None]
  - CEREBROVASCULAR ACCIDENT [None]
